FAERS Safety Report 5129315-9 (Version None)
Quarter: 2006Q4

REPORT INFORMATION
  Report Type: 
  Country: None (occurrence: None)
  Receive Date: 20061018
  Receipt Date: 20061006
  Transmission Date: 20070319
  Serious: Yes (Other)
  Sender: FDA-Public Use
  Company Number: PHHO2006JP16781

PATIENT
  Age: 73 Year
  Sex: Male
  Weight: 45 kg

DRUGS (6)
  1. LOCHOL [Suspect]
     Indication: HYPERCHOLESTEROLAEMIA
     Dosage: 20 MG, QD
     Route: 048
     Dates: start: 20020205
  2. LANIRAPID [Concomitant]
  3. NORVASC [Concomitant]
  4. ACECOL [Concomitant]
  5. EBASTEL [Concomitant]
  6. DIGITOXIN TAB [Concomitant]

REACTIONS (2)
  - PROSTATE CANCER [None]
  - URTICARIA [None]
